FAERS Safety Report 14533024 (Version 9)
Quarter: 2019Q2

REPORT INFORMATION
  Report Type: Report from Study
  Country: FR (occurrence: FR)
  Receive Date: 20180215
  Receipt Date: 20190606
  Transmission Date: 20190711
  Serious: Yes (Hospitalization)
  Sender: FDA-Public Use
  Company Number: FR-ROCHE-2068145

PATIENT
  Age: 61 Year
  Sex: Male
  Weight: 83 kg

DRUGS (14)
  1. ENZALUTAMIDE [Suspect]
     Active Substance: ENZALUTAMIDE
     Indication: HORMONE-REFRACTORY PROSTATE CANCER
     Dosage: MOST RECENT DOSE ON 30/JAN/2018 TEMPORARILY INTERRUPTED ON 01/FEB/2018
     Route: 048
     Dates: start: 20180117
  2. TRAMADOL. [Concomitant]
     Active Substance: TRAMADOL
     Route: 048
     Dates: start: 20180117, end: 20180201
  3. OXYCONTIN [Concomitant]
     Active Substance: OXYCODONE HYDROCHLORIDE
     Route: 048
     Dates: start: 20180308
  4. OXYNORM [Concomitant]
     Active Substance: OXYCODONE HYDROCHLORIDE
     Route: 048
     Dates: start: 20180201
  5. ATEZOLIZUMAB. [Suspect]
     Active Substance: ATEZOLIZUMAB
     Indication: HORMONE-REFRACTORY PROSTATE CANCER
     Dosage: MOST RECENT DOSE (1200 MG) ON 17/JAN/2018 AT 17.25 TEMPORARILY INTERRUPTED ON 07/FEB/2018
     Route: 042
     Dates: start: 20180117
  6. INNOHEP [Concomitant]
     Active Substance: TINZAPARIN SODIUM
     Route: 058
     Dates: start: 201702
  7. DOLIPRANE [Concomitant]
     Active Substance: ACETAMINOPHEN
     Route: 048
     Dates: start: 201801
  8. ENZALUTAMIDE [Suspect]
     Active Substance: ENZALUTAMIDE
     Dosage: CYCLE 2
     Route: 048
     Dates: start: 20180214
  9. OXYCONTIN [Concomitant]
     Active Substance: OXYCODONE HYDROCHLORIDE
     Route: 048
     Dates: start: 20180214, end: 20180307
  10. ELIQUIS [Concomitant]
     Active Substance: APIXABAN
     Dosage: 1 DOSE UNIT UNKNOWN
     Route: 065
  11. AERIUS (DESLORATADINE) [Concomitant]
     Active Substance: DESLORATADINE
     Route: 048
     Dates: start: 20180117
  12. TRIPTORELIN [Concomitant]
     Active Substance: TRIPTORELIN
     Route: 058
     Dates: start: 201405
  13. CACIT D3 [Concomitant]
     Active Substance: CALCIUM\CHOLECALCIFEROL
     Route: 048
     Dates: start: 201801
  14. BI-PROFENID [Concomitant]
     Active Substance: KETOPROFEN
     Route: 048
     Dates: start: 20180117

REACTIONS (1)
  - Erythema [Recovered/Resolved]

NARRATIVE: CASE EVENT DATE: 20180130
